FAERS Safety Report 23597422 (Version 1)
Quarter: 2024Q1

REPORT INFORMATION
  Report Type: Spontaneous
  Country: US (occurrence: US)
  Receive Date: 20240305
  Receipt Date: 20240305
  Transmission Date: 20240409
  Serious: No
  Sender: FDA-Public Use
  Company Number: US-SA-SAC20240223000452

PATIENT
  Age: 51 Year
  Sex: Male

DRUGS (1)
  1. TZIELD [Suspect]
     Active Substance: TEPLIZUMAB-MZWV
     Indication: Diabetes prophylaxis
     Dosage: UNK
     Route: 040
     Dates: start: 202309

REACTIONS (5)
  - Paraesthesia [Not Recovered/Not Resolved]
  - Pain [Recovered/Resolved]
  - Skin haemorrhage [Not Recovered/Not Resolved]
  - Scratch [Not Recovered/Not Resolved]
  - Rash pruritic [Not Recovered/Not Resolved]

NARRATIVE: CASE EVENT DATE: 20231001
